FAERS Safety Report 22340972 (Version 1)
Quarter: 2023Q2

REPORT INFORMATION
  Report Type: Spontaneous
  Country: US (occurrence: US)
  Receive Date: 20230518
  Receipt Date: 20230518
  Transmission Date: 20230721
  Serious: No
  Sender: FDA-Public Use
  Company Number: US-Blueprint Medicines Corporation-SP-US-2023-000810

PATIENT
  Sex: Female

DRUGS (1)
  1. AYVAKIT [Suspect]
     Active Substance: AVAPRITINIB
     Indication: Gastrointestinal stromal tumour
     Route: 048
     Dates: start: 20230508

REACTIONS (3)
  - Unevaluable event [Recovered/Resolved]
  - Muscle spasms [Unknown]
  - Eructation [Unknown]
